FAERS Safety Report 5374665-4 (Version None)
Quarter: 2007Q2

REPORT INFORMATION
  Report Type: 
  Country: None (occurrence: None)
  Receive Date: 20070621
  Receipt Date: 20070320
  Transmission Date: 20071010
  Serious: Yes (Other)
  Sender: FDA-Public Use
  Company Number: 13720628

PATIENT
  Age: 50 Year
  Sex: Female

DRUGS (1)
  1. EMSAM [Suspect]
     Indication: DEPRESSION
     Dosage: 9 MILLIGRAM 1/1 DAY TD
     Route: 062

REACTIONS (11)
  - ANXIETY [None]
  - APHONIA [None]
  - ERYTHEMA [None]
  - FLATULENCE [None]
  - HEADACHE [None]
  - INCREASED APPETITE [None]
  - INSOMNIA [None]
  - MENTAL IMPAIRMENT [None]
  - ORAL CANDIDIASIS [None]
  - RASH [None]
  - WEIGHT INCREASED [None]
